FAERS Safety Report 5965761-9 (Version None)
Quarter: 2008Q4

REPORT INFORMATION
  Report Type: 
  Country: None (occurrence: None)
  Receive Date: 20081125
  Receipt Date: 20081117
  Transmission Date: 20090506
  Serious: Yes (Life-Threatening)
  Sender: FDA-Public Use
  Company Number: IT-ABBOTT-08P-083-0488143-00

PATIENT
  Sex: Female

DRUGS (4)
  1. DEPAKENE [Suspect]
     Indication: BIPOLAR DISORDER
     Route: 048
     Dates: start: 20080710, end: 20080725
  2. IRBESARTAN AND HYDROCHLOROTHIAZIDE [Concomitant]
     Indication: HYPERTENSION
     Route: 048
     Dates: start: 20060101, end: 20080725
  3. CHLORPROMAZINE HCL [Concomitant]
     Indication: BIPOLAR DISORDER
     Route: 048
     Dates: start: 20080710, end: 20080725
  4. DIAZEPAM [Concomitant]
     Indication: ANXIETY
     Route: 048
     Dates: start: 20080710, end: 20080725

REACTIONS (6)
  - CHOLESTASIS [None]
  - HEPATITIS [None]
  - HEPATITIS CHOLESTATIC [None]
  - HEPATOCELLULAR INJURY [None]
  - HYPERPYREXIA [None]
  - JAUNDICE [None]
